FAERS Safety Report 6271797-3 (Version None)
Quarter: 2009Q3

REPORT INFORMATION
  Report Type: 
  Country: None (occurrence: None)
  Receive Date: 20090717
  Receipt Date: 20090707
  Transmission Date: 20100115
  Serious: Yes (Other)
  Sender: FDA-Public Use
  Company Number: DE-PFIZER INC-2009231242

PATIENT

DRUGS (1)
  1. SOMAVERT [Suspect]

REACTIONS (2)
  - ACCIDENTAL EXPOSURE [None]
  - FOREIGN BODY SENSATION IN EYES [None]
